FAERS Safety Report 11151943 (Version 1)
Quarter: 2015Q2

REPORT INFORMATION
  Report Type: Report from Study
  Country: DE (occurrence: DE)
  Receive Date: 20150601
  Receipt Date: 20150601
  Transmission Date: 20150821
  Serious: Yes (Disabling)
  Sender: FDA-Public Use
  Company Number: DE-ROCHE-1573926

PATIENT
  Age: 76 Year

DRUGS (5)
  1. VINCRISTINE [Suspect]
     Active Substance: VINCRISTINE
     Indication: MANTLE CELL LYMPHOMA
     Dosage: LAST DOSE PRIOR TO SAE 11/AUG/2009
     Route: 065
  2. PREDNISONE. [Suspect]
     Active Substance: PREDNISONE
     Indication: MANTLE CELL LYMPHOMA
     Dosage: LAST DOSE PRIOR TO SAE 15/AUG/2009?TOTAL DOSE: 500 MG IN 4TH CYCLE
     Route: 065
  3. RITUXIMAB [Suspect]
     Active Substance: RITUXIMAB
     Indication: MANTLE CELL LYMPHOMA
     Dosage: AS PER PROTOCOL
     Route: 042
  4. CYCLOPHOSPHAMIDE. [Suspect]
     Active Substance: CYCLOPHOSPHAMIDE
     Indication: MANTLE CELL LYMPHOMA
     Dosage: LAST DOSE PRIOR TO SAE 11/AUG/2009
     Route: 065
  5. DOXORUBICIN [Suspect]
     Active Substance: DOXORUBICIN
     Indication: MANTLE CELL LYMPHOMA
     Dosage: LAST DOSE PRIOR TO SAE 11/AUG/2009
     Route: 065

REACTIONS (1)
  - Deafness traumatic [Not Recovered/Not Resolved]

NARRATIVE: CASE EVENT DATE: 20090820
